FAERS Safety Report 20653442 (Version 1)
Quarter: 2022Q1

REPORT INFORMATION
  Report Type: Spontaneous
  Country: CN (occurrence: CN)
  Receive Date: 20220330
  Receipt Date: 20220330
  Transmission Date: 20220423
  Serious: Yes (Other)
  Sender: FDA-Public Use
  Company Number: CN-009507513-2203CHN009068

PATIENT
  Age: 45 Year
  Sex: Female
  Weight: 51 kg

DRUGS (5)
  1. KEYTRUDA [Suspect]
     Active Substance: PEMBROLIZUMAB
     Indication: Lung neoplasm malignant
     Dosage: 200MG, 1 TIME IN ONE DAY (ALSO REPORTED AS ST)
     Route: 041
     Dates: start: 20220301, end: 20220301
  2. PACLITAXEL [Suspect]
     Active Substance: PACLITAXEL
     Indication: Lung neoplasm malignant
     Dosage: 380 MG, 1 TIME IN ONE DAY (ALSO REPORTED AS ST)
     Route: 041
     Dates: start: 20220301, end: 20220301
  3. CARBOPLATIN [Suspect]
     Active Substance: CARBOPLATIN
     Indication: Lung neoplasm malignant
     Dosage: 1 TIME IN ONE DAY (ALSO REPORTED AS ST)
     Route: 041
     Dates: start: 20220301, end: 20220301
  4. SODIUM CHLORIDE [Concomitant]
     Active Substance: SODIUM CHLORIDE
     Indication: Medication dilution
     Dosage: 100 MILLILITER (ALSO REPORTED AS 200 ML) 1 TIME IN ONE DAY
     Route: 041
     Dates: start: 20220301, end: 20220301
  5. DEXTROSE [Concomitant]
     Active Substance: DEXTROSE
     Indication: Medication dilution
     Dosage: 500 ML, 1 TIME IN ONE DAY
     Route: 041
     Dates: start: 20220301, end: 20220301

REACTIONS (1)
  - Myelosuppression [Recovering/Resolving]

NARRATIVE: CASE EVENT DATE: 20220307
